FAERS Safety Report 18373074 (Version 2)
Quarter: 2020Q4

REPORT INFORMATION
  Report Type: Spontaneous
  Country: US (occurrence: US)
  Receive Date: 20201012
  Receipt Date: 20201015
  Transmission Date: 20210114
  Serious: Yes (Hospitalization, Other)
  Sender: FDA-Public Use
  Company Number: US-PFIZER INC-2019022696

PATIENT
  Age: 72 Year
  Sex: Male
  Weight: 108.84 kg

DRUGS (2)
  1. ZYVOX [Suspect]
     Active Substance: LINEZOLID
     Indication: STAPHYLOCOCCAL INFECTION
     Dosage: 600 MG, 2X/DAY
  2. ZYVOX [Suspect]
     Active Substance: LINEZOLID
     Dosage: 600 MG, 1X/DAY
     Route: 048
     Dates: start: 2016

REACTIONS (8)
  - Product prescribing issue [Unknown]
  - Intentional product misuse [Unknown]
  - Joint swelling [Unknown]
  - Off label use [Unknown]
  - Product use issue [Unknown]
  - Limb discomfort [Unknown]
  - Fall [Unknown]
  - Weight decreased [Recovering/Resolving]

NARRATIVE: CASE EVENT DATE: 2020
